FAERS Safety Report 14223861 (Version 2)
Quarter: 2017Q4

REPORT INFORMATION
  Report Type: Spontaneous
  Country: GR (occurrence: GR)
  Receive Date: 20171125
  Receipt Date: 20171222
  Transmission Date: 20180321
  Serious: Yes (Hospitalization)
  Sender: FDA-Public Use
  Company Number: PHHY2017GR173063

PATIENT
  Age: 43 Year
  Sex: Male

DRUGS (8)
  1. HYPOLOC [Concomitant]
     Indication: MYOCARDIAL INFARCTION
     Route: 065
  2. COSENTYX [Suspect]
     Active Substance: SECUKINUMAB
     Indication: PSORIASIS
     Dosage: UNK
     Route: 065
     Dates: start: 20160901
  3. BRILIQUE [Concomitant]
     Active Substance: TICAGRELOR
     Indication: MYOCARDIAL INFARCTION
     Dosage: 90 MG, UNK
     Route: 065
  4. PRAVACHOL [Concomitant]
     Active Substance: PRAVASTATIN SODIUM
     Indication: MYOCARDIAL INFARCTION
     Dosage: 40 MG, UNK
     Route: 065
  5. SALOSPIR [Concomitant]
     Active Substance: ASPIRIN
     Indication: MYOCARDIAL INFARCTION
     Route: 065
  6. HYPOLOC [Concomitant]
     Dosage: 5 MG, UNK
     Route: 065
  7. SOLURIC [Concomitant]
     Active Substance: ALLOPURINOL
     Indication: MYOCARDIAL INFARCTION
     Dosage: 200 MG, UNK
     Route: 065
  8. SOLURIC [Concomitant]
     Active Substance: ALLOPURINOL
     Dosage: 350 MG, UNK
     Route: 065

REACTIONS (4)
  - Pain in extremity [Unknown]
  - Device occlusion [Recovered/Resolved]
  - Myocardial infarction [Unknown]
  - Psoriasis [Unknown]
